FAERS Safety Report 5271522-9 (Version None)
Quarter: 2007Q1

REPORT INFORMATION
  Report Type: 
  Country: None (occurrence: None)
  Receive Date: 20070316
  Receipt Date: 20070306
  Transmission Date: 20070707
  Serious: Yes (Other)
  Sender: FDA-Public Use
  Company Number: OSCN-PR-0703S-0116

PATIENT
  Age: 43 Year
  Sex: Male

DRUGS (22)
  1. OMNISCAN [Suspect]
     Indication: DRUG USE FOR UNKNOWN INDICATION
     Dosage: 40 ML, SINGLE DOSE, I.V.
     Route: 042
     Dates: start: 20040625, end: 20040625
  2. COUMADIN [Concomitant]
  3. LISINOPRIL [Concomitant]
  4. TACROLIMUS-FK506 (PROGRAF) [Concomitant]
  5. PREDNISONE [Concomitant]
  6. RABEPRAZOLE SODIUM [Concomitant]
  7. CLOTRIMAZOLE [Concomitant]
  8. GANCICLOVIR [Concomitant]
  9. BACTRIM [Concomitant]
  10. ASPIRIN [Concomitant]
  11. IMDUR [Concomitant]
  12. NORVASC [Concomitant]
  13. LABETALOL HCL [Concomitant]
  14. TORSEMIDE [Concomitant]
  15. OMEPRAZOLE [Concomitant]
  16. PRAVASTATIN [Concomitant]
  17. CELEXA [Concomitant]
  18. MAGNESIUM OXIDE [Concomitant]
  19. VITAMIN CAP [Concomitant]
  20. FOLIC ACID (FOLATE) [Concomitant]
  21. CALCIUM CARBONATE [Concomitant]
  22. LOVENOX [Concomitant]

REACTIONS (1)
  - NEPHROGENIC FIBROSING DERMOPATHY [None]
